FAERS Safety Report 4775371-7 (Version None)
Quarter: 2005Q3

REPORT INFORMATION
  Report Type: 
  Country: None (occurrence: None)
  Receive Date: 20050920
  Receipt Date: 20050906
  Transmission Date: 20060218
  Serious: Yes (Death)
  Sender: FDA-Public Use
  Company Number: RENA-11532

PATIENT
  Age: 16 Year
  Sex: Male

DRUGS (11)
  1. RENAGEL [Suspect]
     Indication: HYPERPHOSPHATAEMIA
     Dosage: 1.6 G TID PO
     Route: 048
  2. PREDNISONE [Concomitant]
  3. OXYCODONE HCL [Concomitant]
  4. GABAPENTIN [Concomitant]
  5. NIFEDIPINE [Concomitant]
  6. CALCITRIOL [Concomitant]
  7. RANITIDINE [Concomitant]
  8. DIATX [Concomitant]
  9. EPOGEN [Concomitant]
  10. IRON DEXTRAN [Concomitant]
  11. CALCIUM CARBONATE [Concomitant]

REACTIONS (19)
  - ABASIA [None]
  - ARTHRALGIA [None]
  - BLOOD ALBUMIN DECREASED [None]
  - BLOOD CREATININE INCREASED [None]
  - BLOOD PARATHYROID HORMONE INCREASED [None]
  - BLOOD PRESSURE DIASTOLIC DECREASED [None]
  - BLOOD UREA INCREASED [None]
  - CALCIPHYLAXIS [None]
  - CARDIO-RESPIRATORY ARREST [None]
  - GENERAL PHYSICAL HEALTH DETERIORATION [None]
  - HAEMOGLOBIN DECREASED [None]
  - JOINT RANGE OF MOTION DECREASED [None]
  - MICROANGIOPATHY [None]
  - MUSCULOSKELETAL STIFFNESS [None]
  - MYALGIA [None]
  - PAIN [None]
  - PAIN IN EXTREMITY [None]
  - PLATELET COUNT INCREASED [None]
  - SKIN ULCER [None]
